FAERS Safety Report 17486576 (Version 1)
Quarter: 2020Q1

REPORT INFORMATION
  Report Type: Spontaneous
  Country: CN (occurrence: CN)
  Receive Date: 20200303
  Receipt Date: 20200303
  Transmission Date: 20200409
  Serious: Yes (Other)
  Sender: FDA-Public Use
  Company Number: CN-ROCHE-2558904

PATIENT
  Age: 28 Year
  Sex: Female

DRUGS (20)
  1. CALCIUM FOLINATE [Concomitant]
     Active Substance: LEUCOVORIN CALCIUM
     Indication: METASTASES TO NECK
  2. 5-FLUOROURACIL [FLUOROURACIL] [Concomitant]
     Active Substance: FLUOROURACIL
     Indication: ADENOCARCINOMA OF COLON
     Route: 065
     Dates: start: 20170812, end: 20180212
  3. 5-FLUOROURACIL [FLUOROURACIL] [Concomitant]
     Active Substance: FLUOROURACIL
     Indication: METASTASES TO NECK
  4. XELODA [Suspect]
     Active Substance: CAPECITABINE
     Indication: ADENOCARCINOMA OF COLON
     Route: 048
     Dates: start: 20180304, end: 20200206
  5. OXALIPLATIN. [Concomitant]
     Active Substance: OXALIPLATIN
     Indication: ADENOCARCINOMA OF COLON
     Route: 065
     Dates: start: 20170812, end: 20180212
  6. CALCIUM FOLINATE [Concomitant]
     Active Substance: LEUCOVORIN CALCIUM
     Indication: METASTASES TO LIVER
  7. 5-FLUOROURACIL [FLUOROURACIL] [Concomitant]
     Active Substance: FLUOROURACIL
     Indication: METASTASES TO LIVER
  8. XELODA [Suspect]
     Active Substance: CAPECITABINE
     Indication: METASTASES TO LIVER
  9. XELODA [Suspect]
     Active Substance: CAPECITABINE
     Indication: METASTASES TO LYMPH NODES
  10. 5-FLUOROURACIL [FLUOROURACIL] [Concomitant]
     Active Substance: FLUOROURACIL
     Indication: METASTASES TO LYMPH NODES
  11. AVASTIN [Suspect]
     Active Substance: BEVACIZUMAB
     Indication: ADENOCARCINOMA OF COLON
     Route: 065
     Dates: start: 20170812, end: 20180212
  12. AVASTIN [Suspect]
     Active Substance: BEVACIZUMAB
     Indication: METASTASES TO NECK
  13. OXALIPLATIN. [Concomitant]
     Active Substance: OXALIPLATIN
     Indication: METASTASES TO NECK
  14. AVASTIN [Suspect]
     Active Substance: BEVACIZUMAB
     Indication: METASTASES TO LYMPH NODES
  15. XELODA [Suspect]
     Active Substance: CAPECITABINE
     Indication: METASTASES TO NECK
  16. OXALIPLATIN. [Concomitant]
     Active Substance: OXALIPLATIN
     Indication: METASTASES TO LIVER
  17. CALCIUM FOLINATE [Concomitant]
     Active Substance: LEUCOVORIN CALCIUM
     Indication: ADENOCARCINOMA OF COLON
     Route: 065
     Dates: start: 20170812, end: 20180212
  18. AVASTIN [Suspect]
     Active Substance: BEVACIZUMAB
     Indication: METASTASES TO LIVER
     Route: 065
     Dates: start: 20180304, end: 20200206
  19. OXALIPLATIN. [Concomitant]
     Active Substance: OXALIPLATIN
     Indication: METASTASES TO LYMPH NODES
  20. CALCIUM FOLINATE [Concomitant]
     Active Substance: LEUCOVORIN CALCIUM
     Indication: METASTASES TO LYMPH NODES

REACTIONS (11)
  - Neutrophil count decreased [Unknown]
  - Nausea [Unknown]
  - Vomiting [Unknown]
  - Abdominal pain [Unknown]
  - Colitis [Unknown]
  - Intestinal obstruction [Unknown]
  - Hypoaesthesia [Unknown]
  - Stomatitis [Unknown]
  - Asthenia [Unknown]
  - White blood cell count decreased [Unknown]
  - Decreased appetite [Unknown]
